FAERS Safety Report 5904042-6 (Version None)
Quarter: 2008Q3

REPORT INFORMATION
  Report Type: 
  Country: None (occurrence: None)
  Receive Date: 20080919
  Receipt Date: 20080729
  Transmission Date: 20090109
  Serious: No
  Sender: FDA-Public Use
  Company Number: US-WYE-H05293408

PATIENT
  Age: 50 Year
  Sex: Female
  Weight: 59.47 kg

DRUGS (4)
  1. PRISTIQ [Suspect]
     Indication: HOT FLUSH
     Dosage: 50 MG 1X PER 1 DAY, ORAL
     Route: 048
     Dates: start: 20080725
  2. CALCIUM (CALCIUM) [Concomitant]
  3. MULTIVITAMINS (ASCORBIC ACID/ERGOCALCIFEROL/FOLIC ACID/NICOTINAMIDE/PA [Concomitant]
  4. ASPIRIN [Concomitant]

REACTIONS (2)
  - NAUSEA [None]
  - POOR QUALITY SLEEP [None]
